FAERS Safety Report 25645375 (Version 1)
Quarter: 2025Q3

REPORT INFORMATION
  Report Type: Report from Study
  Country: US (occurrence: US)
  Receive Date: 20250805
  Receipt Date: 20250805
  Transmission Date: 20251020
  Serious: Yes (Hospitalization)
  Sender: BAYER HEALTHCARE PHARMACEUTICALS INC.
  Company Number: US-BAYER-2025A102688

PATIENT
  Age: 33 Year
  Sex: Female

DRUGS (1)
  1. STIVARGA [Suspect]
     Active Substance: REGORAFENIB MONOHYDRATE
     Indication: Colorectal cancer
     Dosage: 80 MG, QD FOR 21 DAYS AND OFF 7 DAYS
     Route: 048
     Dates: start: 20250622, end: 2025

REACTIONS (2)
  - Somnolence [Unknown]
  - Dyspnoea [None]
